FAERS Safety Report 17230000 (Version 5)
Quarter: 2022Q1

REPORT INFORMATION
  Report Type: Report from Study
  Country: CA (occurrence: CA)
  Receive Date: 20200103
  Receipt Date: 20220107
  Transmission Date: 20220423
  Serious: Yes (Hospitalization, Other)
  Sender: FDA-Public Use
  Company Number: CA-002147023-PHHY2012CA123946

PATIENT
  Age: 24 Year
  Sex: Female

DRUGS (33)
  1. TOBI [Suspect]
     Active Substance: TOBRAMYCIN
     Indication: Product used for unknown indication
     Dosage: UNK
     Route: 055
  2. XOLAIR [Suspect]
     Active Substance: OMALIZUMAB
     Indication: Asthma
     Dosage: 225 MILLIGRAM, BIWEEKLY/ START DATE: 12-JUN-2012
     Route: 058
  3. XOLAIR [Suspect]
     Active Substance: OMALIZUMAB
     Indication: Bronchopulmonary aspergillosis allergic
     Dosage: START DATE: 11-FEB-2013
     Route: 058
     Dates: start: 20130211
  4. XOLAIR [Suspect]
     Active Substance: OMALIZUMAB
     Indication: Cystic fibrosis
     Dosage: START DATE: 27-FEB-2014
     Route: 058
     Dates: start: 20140227
  5. XOLAIR [Suspect]
     Active Substance: OMALIZUMAB
     Dosage: 375 MILLIGRAM, Q2W/ START DATE: 12-JUN-2012
     Route: 058
     Dates: start: 20120612
  6. XOLAIR [Suspect]
     Active Substance: OMALIZUMAB
     Dosage: START DATE: 17-APR-2014
     Route: 058
     Dates: start: 20140417
  7. XOLAIR [Suspect]
     Active Substance: OMALIZUMAB
     Dosage: START DATE: 05-FEB-2015
     Route: 058
     Dates: start: 20150205
  8. XOLAIR [Suspect]
     Active Substance: OMALIZUMAB
     Dosage: START DATE: 18-JUN-2015
     Route: 058
     Dates: start: 20150618
  9. XOLAIR [Suspect]
     Active Substance: OMALIZUMAB
     Dosage: START DATE: 30-MAR-2016
     Route: 058
     Dates: start: 20160330
  10. XOLAIR [Suspect]
     Active Substance: OMALIZUMAB
     Dosage: 02-JUN-2016
     Route: 058
     Dates: start: 20160602
  11. XOLAIR [Suspect]
     Active Substance: OMALIZUMAB
     Dosage: 03-AUG-2016
     Route: 058
     Dates: start: 20160803
  12. XOLAIR [Suspect]
     Active Substance: OMALIZUMAB
     Dosage: 14-SEP-2016
     Route: 058
     Dates: start: 20160914
  13. XOLAIR [Suspect]
     Active Substance: OMALIZUMAB
     Dosage: START DATE: 07-DEC-2016
     Route: 058
     Dates: start: 20161207
  14. XOLAIR [Suspect]
     Active Substance: OMALIZUMAB
     Dosage: START DATE: 21-DEC-2016
     Route: 058
     Dates: start: 20161221
  15. XOLAIR [Suspect]
     Active Substance: OMALIZUMAB
     Dosage: START DATE: 05-JAN-2017
     Route: 058
     Dates: start: 20170105
  16. XOLAIR [Suspect]
     Active Substance: OMALIZUMAB
     Dosage: START DATE: 18-JAN-2017
     Route: 058
     Dates: start: 20170118
  17. XOLAIR [Suspect]
     Active Substance: OMALIZUMAB
     Dosage: START DATE: 15-FEB-2017
     Route: 058
     Dates: start: 20170215
  18. XOLAIR [Suspect]
     Active Substance: OMALIZUMAB
     Dosage: START DATE: 27-FEB-2017
     Route: 058
     Dates: start: 20170227
  19. XOLAIR [Suspect]
     Active Substance: OMALIZUMAB
     Dosage: 375 MILLIGRAM, Q2W/ START DATE: 22-AUG-2018
     Route: 058
     Dates: start: 20180822
  20. XOLAIR [Suspect]
     Active Substance: OMALIZUMAB
     Dosage: 375 MILLIGRAM, Q2W/13-SEP-2018
     Route: 058
     Dates: start: 20180913
  21. XOLAIR [Suspect]
     Active Substance: OMALIZUMAB
     Dosage: 375 MILLIGRAM, Q2W/05-DEC-2019
     Route: 058
     Dates: start: 20191205
  22. XOLAIR [Suspect]
     Active Substance: OMALIZUMAB
     Dosage: 375 MILLIGRAM, Q2W/ START DATE: 03-APR-2014
     Route: 058
     Dates: start: 20140403
  23. XOLAIR [Suspect]
     Active Substance: OMALIZUMAB
     Dosage: 375 MILLIGRAM, Q2W
     Route: 058
  24. XOLAIR [Suspect]
     Active Substance: OMALIZUMAB
     Dosage: 375 MILLIGRAM, Q2W
     Route: 058
  25. XOLAIR [Suspect]
     Active Substance: OMALIZUMAB
     Dosage: 375 MILLIGRAM, Q2W
     Route: 058
  26. SYMBICORT [Concomitant]
     Active Substance: BUDESONIDE\FORMOTEROL FUMARATE DIHYDRATE
     Indication: Product used for unknown indication
     Dosage: UNK
     Route: 065
  27. ALVESCO [Concomitant]
     Active Substance: CICLESONIDE
     Indication: Product used for unknown indication
     Dosage: UNK
     Route: 065
  28. VENTOLIN [Concomitant]
     Active Substance: ALBUTEROL SULFATE
     Indication: Product used for unknown indication
     Dosage: UNK
     Route: 065
  29. SINGULAIR [Concomitant]
     Active Substance: MONTELUKAST SODIUM
     Indication: Product used for unknown indication
     Dosage: UNK
     Route: 065
  30. PULMOZYME [Concomitant]
     Active Substance: DORNASE ALFA
     Indication: Product used for unknown indication
     Dosage: UNK
     Route: 065
  31. PREDNISONE [Concomitant]
     Active Substance: PREDNISONE
     Indication: Product used for unknown indication
     Dosage: UNK
     Route: 065
  32. TOBYMET [Concomitant]
     Indication: Product used for unknown indication
     Dosage: UNK
     Route: 065
  33. ZITHROMAX [Concomitant]
     Active Substance: AZITHROMYCIN DIHYDRATE
     Indication: Product used for unknown indication
     Dosage: UNK
     Route: 065

REACTIONS (24)
  - Pneumonia [Recovering/Resolving]
  - Diabetes mellitus [Unknown]
  - Cystic fibrosis [Recovering/Resolving]
  - Productive cough [Unknown]
  - Respiratory disorder [Unknown]
  - Sputum discoloured [Unknown]
  - Dyspnoea [Unknown]
  - Nasopharyngitis [Unknown]
  - Bronchial disorder [Unknown]
  - Bronchitis [Unknown]
  - Influenza [Unknown]
  - Hypoglycaemia [Unknown]
  - Heart rate increased [Unknown]
  - Weight increased [Unknown]
  - Respiratory rate increased [Unknown]
  - Body temperature decreased [Unknown]
  - Fatigue [Recovering/Resolving]
  - Cough [Recovering/Resolving]
  - Asthenia [Not Recovered/Not Resolved]
  - Dizziness [Unknown]
  - Weight decreased [Unknown]
  - Drug ineffective [Unknown]
  - Product use in unapproved indication [Unknown]
  - Wrong technique in product usage process [Unknown]

NARRATIVE: CASE EVENT DATE: 20120101
